FAERS Safety Report 11150952 (Version 1)
Quarter: 2015Q2

REPORT INFORMATION
  Report Type: Spontaneous
  Country: FR (occurrence: FR)
  Receive Date: 20150601
  Receipt Date: 20150601
  Transmission Date: 20150821
  Serious: Yes (Hospitalization)
  Sender: FDA-Public Use
  Company Number: FR-SA-2015SA069981

PATIENT
  Age: 82 Year
  Sex: Female

DRUGS (9)
  1. ALTIM [Suspect]
     Active Substance: CORTIVAZOL
     Indication: JOINT INJECTION
     Route: 065
  2. INNOVAIR [Suspect]
     Active Substance: BECLOMETHASONE DIPROPIONATE\FORMOTEROL
     Dosage: FORM: INHALATION (RESPIRATORY)
     Route: 055
     Dates: start: 20150316, end: 20150318
  3. RABEPRAZOLE SODIUM. [Suspect]
     Active Substance: RABEPRAZOLE SODIUM
     Route: 048
     Dates: end: 20150318
  4. AMOXICILLIN. [Suspect]
     Active Substance: AMOXICILLIN
     Route: 048
     Dates: start: 20150316, end: 201504
  5. PERINDOPRIL [Suspect]
     Active Substance: PERINDOPRIL
     Route: 048
  6. MIANSERIN HYDROCHLORIDE [Suspect]
     Active Substance: MIANSERIN HYDROCHLORIDE
     Route: 048
  7. FUROSEMIDE. [Suspect]
     Active Substance: FUROSEMIDE
     Route: 048
  8. LOVENOX [Suspect]
     Active Substance: ENOXAPARIN SODIUM
     Indication: ANTICOAGULANT THERAPY
     Route: 058
     Dates: start: 20150316, end: 20150318
  9. ZYMAD [Suspect]
     Active Substance: CHOLECALCIFEROL
     Route: 048
     Dates: start: 20150316, end: 20150318

REACTIONS (1)
  - Hyponatraemia [Recovered/Resolved]

NARRATIVE: CASE EVENT DATE: 20150318
